FAERS Safety Report 7126263-X (Version None)
Quarter: 2010Q4

REPORT INFORMATION
  Report Type: 
  Country: None (occurrence: None)
  Receive Date: 20101129
  Receipt Date: 20101129
  Transmission Date: 20110411
  Serious: Yes (Hospitalization, Other)
  Sender: FDA-Public Use
  Company Number: US-ABBOTT-10P-163-0686305-00

PATIENT
  Age: 71 Year
  Sex: Female
  Weight: 63 kg

DRUGS (6)
  1. WARFARIN [Suspect]
     Indication: ATRIAL FIBRILLATION
     Route: 048
     Dates: start: 20050101
  2. UNKNOWN MEDICATION [Suspect]
     Indication: NON-SMALL CELL LUNG CANCER
     Route: 048
     Dates: start: 20100521, end: 20101024
  3. OMEPRAZOLE [Concomitant]
     Indication: GASTRITIS
     Dates: start: 20080101
  4. SYNTHROID [Concomitant]
     Indication: HYPOTHYROIDISM
     Dates: start: 20000101
  5. DOCUSATE [Concomitant]
     Indication: CONSTIPATION
     Dates: start: 20080101
  6. VICODIN [Concomitant]
     Indication: PAIN
     Dates: start: 20070101

REACTIONS (9)
  - ARTHRITIS BACTERIAL [None]
  - BRONCHIAL OBSTRUCTION [None]
  - CHONDROCALCINOSIS PYROPHOSPHATE [None]
  - COLLAPSE OF LUNG [None]
  - HAEMOGLOBIN ABNORMAL [None]
  - HAEMOPTYSIS [None]
  - INTERNATIONAL NORMALISED RATIO ABNORMAL [None]
  - PULMONARY THROMBOSIS [None]
  - STREPTOCOCCUS TEST POSITIVE [None]
